FAERS Safety Report 14102871 (Version 4)
Quarter: 2018Q1

REPORT INFORMATION
  Report Type: Report from Study
  Country: BE (occurrence: BE)
  Receive Date: 20171018
  Receipt Date: 20180227
  Transmission Date: 20180508
  Serious: Yes (Hospitalization)
  Sender: FDA-Public Use
  Company Number: BE-TAKEDA-2017TUS021549

PATIENT
  Sex: Female

DRUGS (7)
  1. LUEVA [Concomitant]
     Dosage: 75 UG, UNK
  2. DESORELLE                          /00570801/ [Concomitant]
     Dosage: UNK
  3. VEDOLIZUMAB [Suspect]
     Active Substance: VEDOLIZUMAB
     Indication: PRODUCT USED FOR UNKNOWN INDICATION
     Dosage: UNK
     Route: 042
     Dates: start: 20170113
  4. SPASMOMEN [Concomitant]
     Active Substance: OTILONIUM BROMIDE
     Dosage: 40 MG, UNK
  5. PANTOMED                           /00178901/ [Concomitant]
     Dosage: 40 MG, UNK
  6. ENTOCORT [Concomitant]
     Active Substance: BUDESONIDE
     Dosage: 3 MG, UNK
  7. COLOFIBER [Concomitant]
     Dosage: UNK UNK, QD

REACTIONS (2)
  - Crohn^s disease [Recovered/Resolved]
  - Cat scratch disease [Recovered/Resolved]

NARRATIVE: CASE EVENT DATE: 20170316
